FAERS Safety Report 12603181 (Version 4)
Quarter: 2016Q3

REPORT INFORMATION
  Report Type: Report from Study
  Country: PT (occurrence: PT)
  Receive Date: 20160728
  Receipt Date: 20160919
  Transmission Date: 20161109
  Serious: Yes (Other)
  Sender: FDA-Public Use
  Company Number: PT-ABBVIE-16K-130-1683515-00

PATIENT
  Age: 34 Year
  Sex: Female

DRUGS (5)
  1. HUMIRA [Suspect]
     Active Substance: ADALIMUMAB
     Dosage: LOADING DOSE 2 (WEEK 2)
     Route: 058
     Dates: start: 20160201, end: 20160201
  2. HUMIRA [Suspect]
     Active Substance: ADALIMUMAB
     Route: 058
     Dates: start: 20160704, end: 20160704
  3. HUMIRA [Suspect]
     Active Substance: ADALIMUMAB
     Indication: HIDRADENITIS
     Dosage: LOADING DOSE 1 (WEEK 0)
     Route: 058
     Dates: start: 20160118, end: 20160118
  4. HUMIRA [Suspect]
     Active Substance: ADALIMUMAB
     Indication: HIDRADENITIS
     Route: 058
     Dates: start: 20160711
  5. HUMIRA [Suspect]
     Active Substance: ADALIMUMAB
     Route: 058
     Dates: start: 20160215, end: 201606

REACTIONS (9)
  - Nodule [Not Recovered/Not Resolved]
  - Lymphadenopathy [Recovered/Resolved]
  - Seroma [Recovered/Resolved]
  - Wound secretion [Not Recovered/Not Resolved]
  - Lymphadenopathy [Recovered/Resolved]
  - Post procedural discharge [Unknown]
  - Wound dehiscence [Unknown]
  - Psoriasis [Recovering/Resolving]
  - Psoriasis [Recovering/Resolving]

NARRATIVE: CASE EVENT DATE: 2016
